FAERS Safety Report 10152620 (Version 1)
Quarter: 2014Q2

REPORT INFORMATION
  Report Type: Spontaneous
  Country: US (occurrence: US)
  Receive Date: 20140505
  Receipt Date: 20140505
  Transmission Date: 20141212
  Serious: Yes (Other)
  Sender: FDA-Public Use
  Company Number: US-BEH-2014042146

PATIENT
  Age: 60 Year
  Sex: Female
  Weight: 84 kg

DRUGS (2)
  1. BERINERT [Suspect]
     Indication: HEREDITARY ANGIOEDEMA
     Route: 042
     Dates: start: 20140313
  2. BERINERT [Suspect]
     Indication: PROPHYLAXIS
     Route: 042

REACTIONS (2)
  - Drug ineffective for unapproved indication [Recovered/Resolved]
  - Drug ineffective for unapproved indication [Recovered/Resolved]
